FAERS Safety Report 12690084 (Version 1)
Quarter: 2016Q3

REPORT INFORMATION
  Report Type: Report from Study
  Country: AU (occurrence: AU)
  Receive Date: 20160826
  Receipt Date: 20160826
  Transmission Date: 20161109
  Serious: Yes (Hospitalization, Other)
  Sender: FDA-Public Use
  Company Number: AU-REGENERON PHARMACEUTICALS, INC.-2016-20746

PATIENT

DRUGS (1)
  1. EYLEA [Suspect]
     Active Substance: AFLIBERCEPT
     Indication: DIABETIC RETINAL OEDEMA
     Dosage: UNK
     Dates: start: 201501

REACTIONS (6)
  - Femur fracture [Recovering/Resolving]
  - Injection site pain [Unknown]
  - Product use issue [Unknown]
  - Drug dose omission [Unknown]
  - Fall [Unknown]
  - Blood glucose abnormal [Unknown]
